FAERS Safety Report 4748341-2 (Version None)
Quarter: 2005Q3

REPORT INFORMATION
  Report Type: 
  Country: None (occurrence: None)
  Receive Date: 20050818
  Receipt Date: 20050309
  Transmission Date: 20060218
  Serious: Yes (Hospitalization)
  Sender: FDA-Public Use
  Company Number: US-MERCK-0503USA01997

PATIENT
  Age: 45 Year
  Sex: Male
  Weight: 91 kg

DRUGS (3)
  1. VIOXX [Suspect]
     Indication: OSTEOARTHRITIS
     Route: 048
     Dates: start: 20010501, end: 20020629
  2. VIOXX [Suspect]
     Indication: PAIN
     Route: 048
     Dates: start: 20010501, end: 20020629
  3. CLARINEX [Concomitant]
     Indication: SINUS DISORDER
     Route: 065

REACTIONS (6)
  - ABSCESS OF EYELID [None]
  - BLOOD CHOLESTEROL INCREASED [None]
  - CYST [None]
  - MYOCARDIAL INFARCTION [None]
  - POLYTRAUMATISM [None]
  - ROTATOR CUFF SYNDROME [None]
